FAERS Safety Report 6636128-5 (Version None)
Quarter: 2010Q1

REPORT INFORMATION
  Report Type: 
  Country: None (occurrence: None)
  Receive Date: 20100225
  Receipt Date: 20091023
  Transmission Date: 20100710
  Serious: Yes (Other)
  Sender: FDA-Public Use
  Company Number: US-JNJFOC-20091007937

PATIENT
  Age: 59 Year
  Sex: Female

DRUGS (1)
  1. MOTRIN [Suspect]
     Indication: BACK PAIN
     Dates: start: 19890101

REACTIONS (1)
  - ULCER HAEMORRHAGE [None]
